FAERS Safety Report 9733221 (Version 1)
Quarter: 2013Q4

REPORT INFORMATION
  Report Type: Spontaneous
  Country: CA (occurrence: CA)
  Receive Date: 20131204
  Receipt Date: 20131204
  Transmission Date: 20140711
  Serious: Yes (Other)
  Sender: FDA-Public Use
  Company Number: CA-PURDUE-CAN-2013-0004585

PATIENT
  Sex: Female
  Weight: 57.6 kg

DRUGS (7)
  1. BUTRANS TRANSDERMAL PATCH [Suspect]
     Indication: PAIN
     Dosage: 5 MCG, Q1H
     Route: 062
     Dates: start: 201309
  2. BUTRANS TRANSDERMAL PATCH [Suspect]
     Dosage: 10 MCG, Q1H
     Route: 062
  3. BUTRANS TRANSDERMAL PATCH [Suspect]
     Dosage: 20 MCG, Q1H
     Route: 062
  4. TRAMACET [Concomitant]
     Indication: PAIN
     Dosage: UNK
     Route: 065
  5. PROMETRIUM                         /00110701/ [Concomitant]
     Indication: PRODUCT USED FOR UNKNOWN INDICATION
     Dosage: UNK
     Route: 065
  6. LYRICA [Concomitant]
     Indication: PRODUCT USED FOR UNKNOWN INDICATION
     Dosage: 25 MG, PRN
     Route: 065
  7. VOLTAREN                           /00372301/ [Concomitant]
     Indication: PRODUCT USED FOR UNKNOWN INDICATION
     Dosage: 50 MG, PRN
     Route: 065

REACTIONS (2)
  - Tongue disorder [Not Recovered/Not Resolved]
  - Product adhesion issue [Unknown]
